FAERS Safety Report 4848356-X (Version None)
Quarter: 2005Q4

REPORT INFORMATION
  Report Type: 
  Country: None (occurrence: None)
  Receive Date: 20051208
  Receipt Date: 20050818
  Transmission Date: 20060501
  Serious: Yes (Hospitalization)
  Sender: FDA-Public Use
  Company Number: US-MERCK-0508USA03483

PATIENT
  Age: 44 Year
  Sex: Male
  Weight: 67 kg

DRUGS (4)
  1. VIOXX [Suspect]
     Indication: ARTHRALGIA
     Route: 048
     Dates: start: 20021012, end: 20040101
  2. VIOXX [Suspect]
     Route: 048
     Dates: start: 20021012, end: 20040101
  3. ULTRACET [Concomitant]
     Indication: ARTHRALGIA
     Route: 048
     Dates: start: 20021012
  4. ULTRACET [Concomitant]
     Route: 048
     Dates: start: 20021012

REACTIONS (22)
  - ANXIETY [None]
  - ARRHYTHMIA [None]
  - CARDIAC DISORDER [None]
  - CARDIOVASCULAR DISORDER [None]
  - CHEST PAIN [None]
  - CORONARY ARTERY DISEASE [None]
  - DEPRESSION [None]
  - ELECTROCARDIOGRAM ST-T CHANGE [None]
  - GOUT [None]
  - HEADACHE [None]
  - HEPATIC STEATOSIS [None]
  - INJURY [None]
  - MITRAL VALVE INCOMPETENCE [None]
  - MYOCARDIAL INFARCTION [None]
  - OESOPHAGEAL DISORDER [None]
  - PAIN [None]
  - PARAESTHESIA [None]
  - SCIATICA [None]
  - SUPRAVENTRICULAR EXTRASYSTOLES [None]
  - TACHYCARDIA [None]
  - TRICUSPID VALVE INCOMPETENCE [None]
  - VASODILATATION [None]
